FAERS Safety Report 22537096 (Version 1)
Quarter: 2023Q2

REPORT INFORMATION
  Report Type: Spontaneous
  Country: US (occurrence: None)
  Receive Date: 20230607
  Receipt Date: 20230607
  Transmission Date: 20230721
  Serious: Yes (Hospitalization, Other)
  Sender: FDA-Public Use
  Company Number: None

PATIENT
  Sex: Male

DRUGS (1)
  1. CAPECITABINE [Suspect]
     Active Substance: CAPECITABINE
     Dosage: FREQUENCY : TWICE A DAY;?
     Route: 048

REACTIONS (9)
  - Blood pressure decreased [None]
  - Neuropathy peripheral [None]
  - Vomiting [None]
  - Renal failure [None]
  - Lactic acidosis [None]
  - Blood albumin abnormal [None]
  - Weight decreased [None]
  - Diabetes mellitus inadequate control [None]
  - Palmar-plantar erythrodysaesthesia syndrome [None]
